FAERS Safety Report 14589766 (Version 2)
Quarter: 2018Q1

REPORT INFORMATION
  Report Type: Report from Study
  Country: US (occurrence: US)
  Receive Date: 20180302
  Receipt Date: 20180314
  Transmission Date: 20180509
  Serious: Yes (Death, Other)
  Sender: FDA-Public Use
  Company Number: US-ROCHE-2080661

PATIENT

DRUGS (2)
  1. LENALIDOMIDE [Suspect]
     Active Substance: LENALIDOMIDE
     Indication: CHRONIC LYMPHOCYTIC LEUKAEMIA
     Route: 065
  2. RITUXIMAB. [Suspect]
     Active Substance: RITUXIMAB
     Indication: CHRONIC LYMPHOCYTIC LEUKAEMIA
     Route: 065

REACTIONS (11)
  - Deep vein thrombosis [Unknown]
  - Diarrhoea [Unknown]
  - Rash [Unknown]
  - Cough [Unknown]
  - Neutropenia [Unknown]
  - Immune thrombocytopenic purpura [Unknown]
  - Neuropathy peripheral [Unknown]
  - Fatigue [Unknown]
  - Infection [Fatal]
  - Weight decreased [Unknown]
  - Bone pain [Unknown]
